FAERS Safety Report 10547989 (Version 1)
Quarter: 2014Q4

REPORT INFORMATION
  Report Type: Spontaneous
  Country: US (occurrence: None)
  Receive Date: 20141027
  Receipt Date: 20141027
  Transmission Date: 20150529
  Serious: Yes (Life-Threatening)
  Sender: FDA-Public Use
  Company Number: None

PATIENT
  Age: 52 Year
  Sex: Male
  Weight: 103.6 kg

DRUGS (1)
  1. CEPHALEXIN. [Suspect]
     Active Substance: CEPHALEXIN
     Indication: FOLLICULITIS
     Route: 048
     Dates: start: 20140618, end: 20140625

REACTIONS (1)
  - Erythema multiforme [None]

NARRATIVE: CASE EVENT DATE: 20140620
